FAERS Safety Report 4307890-1 (Version None)
Quarter: 2004Q1

REPORT INFORMATION
  Report Type: 
  Country: None (occurrence: None)
  Receive Date: 20040226
  Receipt Date: 20030116
  Transmission Date: 20041129
  Serious: Yes (Other)
  Sender: FDA-Public Use
  Company Number: 2002135430US

PATIENT
  Age: 49 Year
  Sex: Female
  Weight: 74.8 kg

DRUGS (3)
  1. CELEBREX [Suspect]
     Indication: BACK PAIN
     Dosage: 200 MG, SINGLE, ORAL
     Route: 048
     Dates: start: 20021115, end: 20021115
  2. CELEXA [Concomitant]
  3. EVISTA [Concomitant]

REACTIONS (12)
  - CONFUSIONAL STATE [None]
  - DERMATITIS EXFOLIATIVE [None]
  - FACE OEDEMA [None]
  - FEELING ABNORMAL [None]
  - GENERALISED OEDEMA [None]
  - OEDEMA PERIPHERAL [None]
  - PAIN IN EXTREMITY [None]
  - PRURITUS [None]
  - RASH GENERALISED [None]
  - SKIN DISCOLOURATION [None]
  - SKIN DISORDER [None]
  - TEMPERATURE INTOLERANCE [None]
